FAERS Safety Report 15879191 (Version 1)
Quarter: 2019Q1

REPORT INFORMATION
  Report Type: Spontaneous
  Country: US (occurrence: US)
  Receive Date: 20190128
  Receipt Date: 20190128
  Transmission Date: 20190417
  Serious: No
  Sender: FDA-Public Use
  Company Number: US-MYLANLABS-2019M1002598

PATIENT
  Age: 60 Year
  Sex: Female

DRUGS (2)
  1. TADALAFIL TABLETS USP [Suspect]
     Active Substance: TADALAFIL
     Dosage: UNK
     Route: 048
  2. TADALAFIL TABLETS USP [Suspect]
     Active Substance: TADALAFIL
     Indication: PULMONARY ARTERIAL HYPERTENSION
     Dosage: 2 DOSAGE FORM, QD
     Route: 048
     Dates: start: 20181214

REACTIONS (1)
  - Rash generalised [Recovered/Resolved]
